FAERS Safety Report 13652622 (Version 1)
Quarter: 2017Q2

REPORT INFORMATION
  Report Type: Spontaneous
  Country: AE (occurrence: AE)
  Receive Date: 20170614
  Receipt Date: 20170614
  Transmission Date: 20170830
  Serious: Yes (Other)
  Sender: FDA-Public Use
  Company Number: AE-B.I. PHARMACEUTICALS,INC./RIDGEFIELD-2017-BI-032307

PATIENT
  Age: 40 Year
  Sex: Female
  Weight: 85 kg

DRUGS (1)
  1. JARDIANCE [Suspect]
     Active Substance: EMPAGLIFLOZIN
     Indication: DIABETES MELLITUS
     Route: 065
     Dates: start: 20170101, end: 20170601

REACTIONS (4)
  - Blood bicarbonate abnormal [Recovered/Resolved]
  - Blood pH abnormal [Recovered/Resolved]
  - Blood glucose abnormal [Recovered/Resolved]
  - Diabetic ketoacidosis [Recovered/Resolved]
